FAERS Safety Report 6930156-8 (Version None)
Quarter: 2010Q3

REPORT INFORMATION
  Report Type: 
  Country: None (occurrence: None)
  Receive Date: 20100818
  Receipt Date: 20100806
  Transmission Date: 20110219
  Serious: No
  Sender: FDA-Public Use
  Company Number: US-PFIZER INC-2010099274

PATIENT
  Sex: Male
  Weight: 86 kg

DRUGS (4)
  1. CHANTIX [Suspect]
     Indication: SMOKING CESSATION THERAPY
     Dosage: 0.5 MG,DAILY
     Route: 048
     Dates: start: 20090901, end: 20091001
  2. SERTRALINE [Concomitant]
     Indication: ANXIETY
     Dosage: 100 MG, UNK
     Route: 048
  3. SERTRALINE [Concomitant]
     Indication: DEPRESSION
  4. LUNESTA [Concomitant]
     Indication: SLEEP DISORDER
     Dosage: 3 MG, UNK
     Route: 048

REACTIONS (2)
  - ABDOMINAL DISCOMFORT [None]
  - DIARRHOEA [None]
